FAERS Safety Report 18000088 (Version 1)
Quarter: 2020Q3

REPORT INFORMATION
  Report Type: Spontaneous
  Country: US (occurrence: US)
  Receive Date: 20200709
  Receipt Date: 20200709
  Transmission Date: 20201103
  Serious: No
  Sender: FDA-Public Use
  Company Number: US-009507513-2007USA000546

PATIENT
  Age: 36 Year
  Sex: Female

DRUGS (1)
  1. NEXPLANON [Suspect]
     Active Substance: ETONOGESTREL
     Indication: CONTRACEPTION
     Dosage: 1 IMPLANT, DAILY
     Route: 059
     Dates: start: 20200226, end: 20200619

REACTIONS (2)
  - Menstruation irregular [Unknown]
  - Metrorrhagia [Unknown]

NARRATIVE: CASE EVENT DATE: 202002
